FAERS Safety Report 10474411 (Version 2)
Quarter: 2014Q4

REPORT INFORMATION
  Report Type: Spontaneous
  Country: US (occurrence: US)
  Receive Date: 20140924
  Receipt Date: 20141118
  Transmission Date: 20150528
  Serious: Yes (Other)
  Sender: FDA-Public Use
  Company Number: US-PFIZER INC-2014263308

PATIENT
  Age: 67 Year
  Sex: Female
  Weight: 73 kg

DRUGS (4)
  1. DILTIAZEM [Concomitant]
     Active Substance: DILTIAZEM
     Dosage: UNK
  2. TIKOSYN [Suspect]
     Active Substance: DOFETILIDE
     Indication: ATRIAL FIBRILLATION
     Dosage: 0.25 MG, 2X/DAY
     Route: 048
     Dates: start: 20140907
  3. XARELTO [Concomitant]
     Active Substance: RIVAROXABAN
     Dosage: 20 MG, 1X/DAY
  4. WELLBUTRIN [Concomitant]
     Active Substance: BUPROPION HYDROCHLORIDE
     Dosage: UNK

REACTIONS (8)
  - Cough [Unknown]
  - Asthma [Unknown]
  - Cardiac disorder [Unknown]
  - Headache [Unknown]
  - Malaise [Unknown]
  - Heart rate increased [Unknown]
  - Syncope [Unknown]
  - Chest pain [Unknown]

NARRATIVE: CASE EVENT DATE: 201409
